FAERS Safety Report 10160854 (Version 1)
Quarter: 2014Q2

REPORT INFORMATION
  Report Type: Spontaneous
  Country: CA (occurrence: CA)
  Receive Date: 20140508
  Receipt Date: 20140508
  Transmission Date: 20141212
  Serious: Yes (Hospitalization)
  Sender: FDA-Public Use
  Company Number: CA-B.I. PHARMACEUTICALS,INC./RIDGEFIELD-2014-BI-20234CN

PATIENT
  Age: 55 Year
  Sex: Female

DRUGS (9)
  1. SPIRIVA [Suspect]
     Indication: PRODUCT USED FOR UNKNOWN INDICATION
     Dosage: 18 MCG
     Route: 055
  2. ASA [Concomitant]
     Route: 065
  3. ATORVASTATIN CALCIUM [Concomitant]
     Route: 065
  4. HYDROCHLOROTHIAZIDE [Concomitant]
     Route: 065
  5. LORAZEPAM [Concomitant]
     Route: 065
  6. METOPROLOL [Concomitant]
     Route: 065
  7. PREDNISONE [Concomitant]
     Route: 065
  8. VALSARTAN [Concomitant]
     Route: 065
  9. VENTOLIN HFA [Concomitant]
     Route: 065

REACTIONS (4)
  - Cardiac monitoring abnormal [Recovered/Resolved]
  - Chest pain [Recovered/Resolved]
  - Discomfort [Recovered/Resolved]
  - Product substitution issue [Recovered/Resolved]
